FAERS Safety Report 10951984 (Version 1)
Quarter: 2015Q1

REPORT INFORMATION
  Report Type: Spontaneous
  Country: US (occurrence: US)
  Receive Date: 20150325
  Receipt Date: 20150325
  Transmission Date: 20150721
  Serious: Yes (Death)
  Sender: FDA-Public Use
  Company Number: US-CIPLA LTD.-2015US02237

PATIENT

DRUGS (7)
  1. FLUOXETINE [Suspect]
     Active Substance: FLUOXETINE\FLUOXETINE HYDROCHLORIDE
  2. TOPIRAMATE. [Suspect]
     Active Substance: TOPIRAMATE
  3. CLONAZEPAM. [Suspect]
     Active Substance: CLONAZEPAM
  4. MEPROBAMATE. [Suspect]
     Active Substance: MEPROBAMATE
  5. ACETAMINOPHEN. [Suspect]
     Active Substance: ACETAMINOPHEN
  6. ZOLPIDEM TARTARATE [Suspect]
     Active Substance: ZOLPIDEM TARTRATE
  7. BUTALBITAL [Suspect]
     Active Substance: BUTALBITAL

REACTIONS (1)
  - Completed suicide [Fatal]
